FAERS Safety Report 7004087-1 (Version None)
Quarter: 2010Q3

REPORT INFORMATION
  Report Type: 
  Country: None (occurrence: None)
  Receive Date: 20100920
  Receipt Date: 20100219
  Transmission Date: 20110219
  Serious: No
  Sender: FDA-Public Use
  Company Number: US-WYE-H12962010

PATIENT
  Sex: Female
  Weight: 64.92 kg

DRUGS (5)
  1. PRISTIQ [Suspect]
     Indication: BIPOLAR DISORDER
     Route: 048
     Dates: start: 20091001, end: 20090101
  2. PRISTIQ [Suspect]
     Route: 048
     Dates: start: 20090101, end: 20090101
  3. PRISTIQ [Suspect]
     Route: 048
     Dates: start: 20090101
  4. LAMICTAL [Concomitant]
  5. VENLAFAXINE HYDROCHLORIDE [Concomitant]

REACTIONS (3)
  - ANXIETY [None]
  - CRYING [None]
  - DRUG INEFFECTIVE [None]
